FAERS Safety Report 6402720-6 (Version None)
Quarter: 2009Q4

REPORT INFORMATION
  Report Type: 
  Country: None (occurrence: None)
  Receive Date: 20091013
  Receipt Date: 20091006
  Transmission Date: 20100525
  Serious: Yes (Other)
  Sender: FDA-Public Use
  Company Number: TPA200903102

PATIENT
  Age: 68 Year
  Sex: Male
  Weight: 83.9154 kg

DRUGS (2)
  1. ACTOS [Suspect]
     Indication: TYPE 2 DIABETES MELLITUS
     Dosage: PER ORAL
     Route: 048
     Dates: start: 20081001, end: 20090901
  2. METOPROLOL (METOPROLOL) [Concomitant]

REACTIONS (8)
  - CELLULITIS [None]
  - COUGH [None]
  - DRUG INEFFECTIVE [None]
  - HEPATIC CIRRHOSIS [None]
  - MALAISE [None]
  - PORTAL HYPERTENSION [None]
  - POSTNASAL DRIP [None]
  - VARICES OESOPHAGEAL [None]
